FAERS Safety Report 17389765 (Version 1)
Quarter: 2020Q1

REPORT INFORMATION
  Report Type: Report from Study
  Country: US (occurrence: US)
  Receive Date: 20200207
  Receipt Date: 20200207
  Transmission Date: 20200409
  Serious: Yes (Other)
  Sender: FDA-Public Use
  Company Number: US-B.I. PHARMACEUTICALS,INC./RIDGEFIELD-2019-BI-100370

PATIENT
  Sex: Male

DRUGS (2)
  1. OFEV [Suspect]
     Active Substance: NINTEDANIB
     Route: 048
  2. OFEV [Suspect]
     Active Substance: NINTEDANIB
     Indication: IDIOPATHIC PULMONARY FIBROSIS
     Dosage: TAKE 1 CAPSULE  TWICE A DAY 12 HOURS APART WITH FOOD
     Route: 048
     Dates: start: 20190816, end: 20191213

REACTIONS (3)
  - Gastrointestinal disorder [Recovered/Resolved]
  - Hip fracture [Recovering/Resolving]
  - Abdominal discomfort [Not Recovered/Not Resolved]
